FAERS Safety Report 7755239-4 (Version None)
Quarter: 2011Q3

REPORT INFORMATION
  Report Type: 
  Country: None (occurrence: None)
  Receive Date: 20110916
  Receipt Date: 20110912
  Transmission Date: 20111222
  Serious: Yes (Hospitalization, Other)
  Sender: FDA-Public Use
  Company Number: US-TEVA-298085USA

PATIENT
  Sex: Female

DRUGS (2)
  1. ATENOLOL [Suspect]
     Indication: HYPERTENSION
  2. ATENOLOL [Suspect]
     Indication: CORONARY ARTERY DISEASE
     Route: 048
     Dates: start: 20070418, end: 20100205

REACTIONS (12)
  - BRADYCARDIA [None]
  - SINUSITIS [None]
  - CHEST PAIN [None]
  - BUNDLE BRANCH BLOCK LEFT [None]
  - SICK SINUS SYNDROME [None]
  - COUGH [None]
  - PNEUMONIA [None]
  - DIARRHOEA [None]
  - DIZZINESS [None]
  - GAIT DISTURBANCE [None]
  - TORTICOLLIS [None]
  - DYSPNOEA [None]
